FAERS Safety Report 11578598 (Version 1)
Quarter: 2015Q3

REPORT INFORMATION
  Report Type: Spontaneous
  Country: FR (occurrence: FR)
  Receive Date: 20150930
  Receipt Date: 20150930
  Transmission Date: 20151125
  Serious: Yes (Hospitalization)
  Sender: FDA-Public Use
  Company Number: FR-PFIZER INC-2015318182

PATIENT
  Age: 86 Year
  Sex: Female

DRUGS (5)
  1. AMAREL [Suspect]
     Active Substance: GLIMEPIRIDE
     Dosage: 1 DF, 1X/DAY
     Route: 048
     Dates: end: 20150831
  2. TAREG [Suspect]
     Active Substance: VALSARTAN
     Dosage: 40 MG, 1X/DAY
     Route: 048
     Dates: end: 20150831
  3. ASPEGIC [Concomitant]
     Active Substance: ASPIRIN DL-LYSINE
  4. METFORMIN [Concomitant]
     Active Substance: METFORMIN HYDROCHLORIDE
  5. AMLOR [Suspect]
     Active Substance: AMLODIPINE BESYLATE
     Dosage: 10 MG, 1X/DAY
     Route: 048
     Dates: end: 20150831

REACTIONS (3)
  - Dementia [Unknown]
  - Fall [Recovered/Resolved]
  - Hypoglycaemia [Recovered/Resolved]

NARRATIVE: CASE EVENT DATE: 20150831
